FAERS Safety Report 21801839 (Version 1)
Quarter: 2022Q4

REPORT INFORMATION
  Report Type: Spontaneous
  Country: DE (occurrence: DE)
  Receive Date: 20221230
  Receipt Date: 20221230
  Transmission Date: 20230113
  Serious: Yes (Hospitalization)
  Sender: FDA-Public Use
  Company Number: DE-JNJFOC-20221251249

PATIENT
  Age: 49 Year
  Sex: Female
  Weight: 137 kg

DRUGS (3)
  1. DEXAMETHASONE [Suspect]
     Active Substance: DEXAMETHASONE
     Indication: Plasma cell myeloma
     Dosage: LINE 2 DATE OF THE LAST DOSAGE BEFORE EVENT ONSET:27-APR-2020
     Route: 065
     Dates: start: 20190429, end: 20200427
  2. REVLIMID [Suspect]
     Active Substance: LENALIDOMIDE
     Indication: Plasma cell myeloma
     Dosage: LINE 2 DATE OF THE LAST DOSAGE BEFORE EVENT ONSET:30-SEP-2019
     Route: 065
     Dates: start: 20190729, end: 20190930
  3. DARATUMUMAB [Suspect]
     Active Substance: DARATUMUMAB
     Indication: Plasma cell myeloma
     Dosage: LINE 2 DATE OF THE LAST DOSAGE BEFORE EVENT ONSET: 01-FEB-2021
     Route: 042
     Dates: start: 20200525

REACTIONS (1)
  - Adenoma benign [Recovered/Resolved]

NARRATIVE: CASE EVENT DATE: 20210217
